FAERS Safety Report 5030286-4 (Version None)
Quarter: 2006Q2

REPORT INFORMATION
  Report Type: 
  Country: None (occurrence: None)
  Receive Date: 20060614
  Receipt Date: 20060607
  Transmission Date: 20061013
  Serious: Yes (Death, Hospitalization)
  Sender: FDA-Public Use
  Company Number: 430006M06FRA

PATIENT
  Age: 16 Year
  Sex: Female

DRUGS (6)
  1. NOVANTRONE [Suspect]
     Indication: ACUTE MYELOMONOCYTIC LEUKAEMIA
     Dosage: 19 MG, 1 IN 1 DAY, INTRAVENOUS
     Route: 042
     Dates: start: 20060411, end: 20060415
  2. CYTARABINE [Suspect]
     Indication: ACUTE MYELOMONOCYTIC LEUKAEMIA
     Dosage: 310 MG, 1 IN 1 DAYS, INTRAVENOUS
     Route: 042
     Dates: start: 20060409, end: 20060415
  3. CHLORPROMAZINE HYDROCHLORIDE [Concomitant]
  4. PIP/TAZO [Concomitant]
  5. ONDANSETRON HCL [Concomitant]
  6. VANCOMYCIN [Concomitant]

REACTIONS (7)
  - ABDOMINAL PAIN [None]
  - ENTEROCOLITIS [None]
  - INFECTION [None]
  - PANCYTOPENIA [None]
  - PYREXIA [None]
  - RENAL FAILURE ACUTE [None]
  - RESPIRATORY DISTRESS [None]
